FAERS Safety Report 25648580 (Version 1)
Quarter: 2025Q3

REPORT INFORMATION
  Report Type: Spontaneous
  Country: TW (occurrence: TW)
  Receive Date: 20250806
  Receipt Date: 20250806
  Transmission Date: 20251020
  Serious: Yes (Death, Hospitalization, Other)
  Sender: CELLTRION
  Company Number: TW-CELLTRION INC.-2025TW021982

PATIENT

DRUGS (5)
  1. INFLIXIMAB [Suspect]
     Active Substance: INFLIXIMAB
     Indication: Rheumatoid arthritis
     Route: 042
     Dates: end: 20250506
  2. METHOTREXATE SODIUM [Concomitant]
     Active Substance: METHOTREXATE SODIUM
     Dosage: 3# QW
  3. FOLIC ACID [Concomitant]
     Active Substance: FOLIC ACID
  4. UTRAPHEN [Concomitant]
  5. HYDROXYCHLOROQUINE SULFATE [Concomitant]
     Active Substance: HYDROXYCHLOROQUINE SULFATE

REACTIONS (3)
  - Pulmonary haemorrhage [Fatal]
  - Pneumonia [Unknown]
  - Underdose [Unknown]

NARRATIVE: CASE EVENT DATE: 20250601
